FAERS Safety Report 6047143-7 (Version None)
Quarter: 2009Q1

REPORT INFORMATION
  Report Type: 
  Country: None (occurrence: None)
  Receive Date: 20090122
  Receipt Date: 20090115
  Transmission Date: 20090719
  Serious: Yes (Hospitalization, Disabling, Other)
  Sender: FDA-Public Use
  Company Number: PHHY2008BR32900

PATIENT
  Age: 52 Year
  Sex: Male

DRUGS (3)
  1. DIOVAN HCT [Suspect]
     Indication: HYPERTENSION
     Dosage: 1 DF, QD
     Route: 048
  2. DIOVAN HCT [Suspect]
     Dosage: 2 DF, QD
     Route: 048
  3. VINPOCETINE [Concomitant]
     Indication: JUGULAR VEIN THROMBOSIS
     Dosage: 5 MG, QD
     Route: 048

REACTIONS (7)
  - BLOOD PRESSURE FLUCTUATION [None]
  - CEREBROVASCULAR ACCIDENT [None]
  - DYSPHAGIA [None]
  - PHYSIOTHERAPY [None]
  - SPEECH DISORDER [None]
  - TREATMENT NONCOMPLIANCE [None]
  - WALKING DISABILITY [None]
